FAERS Safety Report 6929537-8 (Version None)
Quarter: 2010Q3

REPORT INFORMATION
  Report Type: 
  Country: None (occurrence: None)
  Receive Date: 20100813
  Receipt Date: 20100810
  Transmission Date: 20110219
  Serious: Yes (Hospitalization, Congenital Anomaly)
  Sender: FDA-Public Use
  Company Number: 2010SP037414

PATIENT
  Age: 2 Day
  Weight: 2.63 kg

DRUGS (2)
  1. PEG-INTRON [Suspect]
     Indication: PREGNANCY
  2. REBETOL [Suspect]
     Indication: PREGNANCY

REACTIONS (4)
  - ATRIAL SEPTAL DEFECT [None]
  - INFANTILE APNOEIC ATTACK [None]
  - MATERNAL DRUGS AFFECTING FOETUS [None]
  - PULMONARY ARTERY STENOSIS [None]
